FAERS Safety Report 21802740 (Version 1)
Quarter: 2022Q4

REPORT INFORMATION
  Report Type: Spontaneous
  Country: FR (occurrence: FR)
  Receive Date: 20221231
  Receipt Date: 20221231
  Transmission Date: 20230113
  Serious: Yes (Disabling)
  Sender: FDA-Public Use
  Company Number: None

PATIENT
  Age: 36 Year
  Sex: Male
  Weight: 60 kg

DRUGS (1)
  1. VOTRIENT [Suspect]
     Active Substance: PAZOPANIB HYDROCHLORIDE
     Indication: Metastasis
     Dosage: UNK (400MG JOURS PAIRS600MG JOURS IMPAIRS)
     Route: 048
     Dates: start: 201607, end: 20190529

REACTIONS (1)
  - Vogt-Koyanagi-Harada disease [Unknown]

NARRATIVE: CASE EVENT DATE: 20181001
